FAERS Safety Report 9565993 (Version 3)
Quarter: 2014Q1

REPORT INFORMATION
  Report Type: Report from Study
  Country: US (occurrence: US)
  Receive Date: 20130930
  Receipt Date: 20140120
  Transmission Date: 20141002
  Serious: Yes (Hospitalization, Other)
  Sender: FDA-Public Use
  Company Number: US-ALEXION PHARMACEUTICALS INC.-A201301332

PATIENT
  Age: 61 Year
  Sex: Female

DRUGS (2)
  1. SOLIRIS [Suspect]
     Indication: PAROXYSMAL NOCTURNAL HAEMOGLOBINURIA
     Dosage: UNK
     Route: 042
  2. SOLIRIS [Suspect]
     Dosage: 900 MG, UNK
     Route: 042
     Dates: start: 20130919

REACTIONS (3)
  - Febrile neutropenia [Unknown]
  - Pancytopenia [Recovered/Resolved with Sequelae]
  - Clostridium difficile infection [Unknown]
